FAERS Safety Report 9199161 (Version 1)
Quarter: 2013Q1

REPORT INFORMATION
  Report Type: Report from Study
  Country: FR (occurrence: FR)
  Receive Date: 20130329
  Receipt Date: 20130329
  Transmission Date: 20140127
  Serious: Yes (Other)
  Sender: FDA-Public Use
  Company Number: FR-VERTEX PHARMACEUTICALS INC.-2013-004237

PATIENT
  Age: 59 Year
  Sex: Male
  Weight: 65 kg

DRUGS (11)
  1. VX-950 (TELAPREVIR) [Suspect]
     Indication: HEPATITIS C
     Dosage: 375 MG, UNK
     Route: 048
     Dates: start: 20110314, end: 20110607
  2. VX-950 (TELAPREVIR) [Suspect]
     Indication: HEPATITIS C
  3. PEGASYS [Suspect]
     Indication: HEPATITIS C
     Dosage: DOSAGE FORM: UNSPECIFIED
     Route: 058
     Dates: start: 20110622, end: 20120214
  4. PEGASYS [Suspect]
     Dosage: DOSAGE FORM: UNSPECIFIED
     Route: 058
     Dates: start: 20110314, end: 20110621
  5. COPEGUS [Concomitant]
     Indication: HEPATITIS C
     Dosage: DOSAGE FORM: UNSPECIFIED
     Route: 048
  6. COPEGUS [Concomitant]
     Dosage: DOSAGE FORM: UNSPECIFIED
     Route: 048
  7. COPEGUS [Concomitant]
     Dosage: DOSAGE FORM: UNSPECIFIED
     Route: 048
     Dates: start: 20110314
  8. CHONDROSULF [Concomitant]
     Indication: POLYARTHRITIS
     Dosage: 400 MG, QD
     Route: 048
  9. PARACETAMOL [Concomitant]
     Indication: PYREXIA
     Dosage: WHEN NEEDED
     Route: 048
     Dates: start: 20110314, end: 20120215
  10. LEXOMIL [Concomitant]
     Indication: SLEEP DISORDER
     Dosage: 3 MG, QD
  11. LEXOMIL [Concomitant]
     Indication: ANXIETY

REACTIONS (3)
  - Neutropenia [Recovered/Resolved]
  - Thrombocytopenia [Not Recovered/Not Resolved]
  - Anaemia [Recovered/Resolved]
